FAERS Safety Report 6769764-6 (Version None)
Quarter: 2010Q2

REPORT INFORMATION
  Report Type: 
  Country: None (occurrence: None)
  Receive Date: 20100615
  Receipt Date: 20100606
  Transmission Date: 20101027
  Serious: Yes (Hospitalization, Other)
  Sender: FDA-Public Use
  Company Number: US-ROCHE-708817

PATIENT
  Sex: Male

DRUGS (2)
  1. PEGASYS [Suspect]
     Indication: HEPATITIS C
     Dosage: PRE-FILLED SYRINGE
     Route: 058
     Dates: start: 20100519
  2. RIBAVIRIN [Suspect]
     Indication: HEPATITIS C
     Dosage: DIVIDED DOSES
     Route: 048
     Dates: start: 20100519

REACTIONS (8)
  - EPISTAXIS [None]
  - FATIGUE [None]
  - MOUTH HAEMORRHAGE [None]
  - PLATELET COUNT DECREASED [None]
  - VARICES OESOPHAGEAL [None]
  - VERTIGO [None]
  - VISUAL ACUITY REDUCED [None]
  - WHITE BLOOD CELL COUNT DECREASED [None]
